FAERS Safety Report 6293746-4 (Version None)
Quarter: 2009Q3

REPORT INFORMATION
  Report Type: 
  Country: None (occurrence: None)
  Receive Date: 20090803
  Receipt Date: 20090727
  Transmission Date: 20100115
  Serious: Yes (Other)
  Sender: FDA-Public Use
  Company Number: CA-ASTRAZENECA-2009UW21419

PATIENT
  Age: 68 Year
  Sex: Male

DRUGS (9)
  1. NEXIUM [Suspect]
     Indication: DUODENAL ULCER
     Route: 048
  2. NEXIUM [Suspect]
     Route: 048
  3. MSM [Concomitant]
     Indication: ARTHROPATHY
     Route: 048
  4. ACETAMINOPHEN ER [Concomitant]
  5. VITAMIN D [Concomitant]
  6. OMEGA 3,6,9 [Concomitant]
  7. HALIBUT OIL [Concomitant]
  8. COVERSYL [Concomitant]
     Indication: HYPERTENSION
  9. RATIO-TAMSULOSIN [Concomitant]
     Indication: PROSTATOMEGALY
     Route: 048

REACTIONS (4)
  - ABDOMINAL PAIN UPPER [None]
  - DECREASED APPETITE [None]
  - PROSTATE CANCER [None]
  - PROSTATOMEGALY [None]
